FAERS Safety Report 5043186-0 (Version None)
Quarter: 2006Q2

REPORT INFORMATION
  Report Type: 
  Country: None (occurrence: None)
  Receive Date: 20060628
  Receipt Date: 20060612
  Transmission Date: 20061013
  Serious: Yes (Hospitalization, Other)
  Sender: FDA-Public Use
  Company Number: 2006BI005056

PATIENT
  Age: 60 Year
  Sex: Female
  Weight: 81.6475 kg

DRUGS (12)
  1. AVONEX [Suspect]
     Indication: MULTIPLE SCLEROSIS
     Dosage: 30 UG; QW; IM
     Route: 030
     Dates: end: 20040101
  2. AVONEX [Suspect]
     Indication: MULTIPLE SCLEROSIS
     Dosage: 30 UG; QW; IM
     Route: 030
     Dates: start: 20040101
  3. INSULIN [Concomitant]
  4. METFORMIN [Concomitant]
  5. LISINOPRIL [Concomitant]
  6. HYOSCYAMINE [Concomitant]
  7. ZOCOR [Concomitant]
  8. XANAX [Concomitant]
  9. FUROSEMIDE [Concomitant]
  10. QUININE SULFATE [Concomitant]
  11. TIZANIDINE HCL [Concomitant]
  12. FLUOXETINE [Concomitant]

REACTIONS (6)
  - BLOOD POTASSIUM DECREASED [None]
  - CARDIAC FAILURE CONGESTIVE [None]
  - DYSPNOEA [None]
  - GALLBLADDER OBSTRUCTION [None]
  - GASTRITIS [None]
  - OESOPHAGITIS [None]
